FAERS Safety Report 5334185-X (Version None)
Quarter: 2007Q2

REPORT INFORMATION
  Report Type: 
  Country: None (occurrence: None)
  Receive Date: 20070523
  Receipt Date: 20070523
  Transmission Date: 20071010
  Serious: Yes (Disabling)
  Sender: FDA-Public Use
  Company Number: None

PATIENT
  Age: 21 Year
  Sex: Female
  Weight: 53.5244 kg

DRUGS (1)
  1. AVELOX [Suspect]
     Indication: SINUSITIS
     Dates: start: 20070201, end: 20070211

REACTIONS (1)
  - TENDON RUPTURE [None]
